FAERS Safety Report 17437547 (Version 1)
Quarter: 2020Q1

REPORT INFORMATION
  Report Type: Spontaneous
  Country: US (occurrence: HT)
  Receive Date: 20200219
  Receipt Date: 20200219
  Transmission Date: 20200409
  Serious: Yes (Hospitalization)
  Sender: FDA-Public Use
  Company Number: HT-AKRON, INC.-2080692

PATIENT
  Age: 11 Year
  Sex: Male

DRUGS (3)
  1. IBUPROFEN. [Suspect]
     Active Substance: IBUPROFEN
  2. VANCMOYCIN HCL CAPSULES, USP [Suspect]
     Active Substance: VANCOMYCIN HYDROCHLORIDE
     Route: 042
  3. AZASITE [Suspect]
     Active Substance: AZITHROMYCIN MONOHYDRATE
     Route: 042

REACTIONS (1)
  - Linear IgA disease [Recovering/Resolving]
